FAERS Safety Report 6095535-2 (Version None)
Quarter: 2009Q1

REPORT INFORMATION
  Report Type: 
  Country: None (occurrence: None)
  Receive Date: 20090227
  Receipt Date: 20080502
  Transmission Date: 20090719
  Serious: No
  Sender: FDA-Public Use
  Company Number: A0724123A

PATIENT
  Age: 90 Year
  Sex: Male

DRUGS (10)
  1. LAMICTAL [Suspect]
     Dosage: 25MG PER DAY
     Route: 048
     Dates: start: 20080407
  2. GLYBURIDE [Concomitant]
  3. LISINOPRIL [Concomitant]
  4. AMLODIPINE [Concomitant]
  5. TERAZOSIN HCL [Concomitant]
  6. ZOCOR [Concomitant]
  7. TYLENOL [Concomitant]
  8. IRON [Concomitant]
  9. ASPIRIN [Concomitant]
  10. EYE DROPS [Concomitant]

REACTIONS (2)
  - PRURITUS [None]
  - RASH [None]
